FAERS Safety Report 18459262 (Version 6)
Quarter: 2024Q4

REPORT INFORMATION
  Report Type: Spontaneous
  Country: US (occurrence: US)
  Receive Date: 20201103
  Receipt Date: 20241001
  Transmission Date: 20250115
  Serious: Yes (Other)
  Sender: PFIZER
  Company Number: US-PFIZER INC-2020421609

PATIENT
  Age: 63 Year
  Sex: Male

DRUGS (2)
  1. XELJANZ XR [Suspect]
     Active Substance: TOFACITINIB CITRATE
     Indication: Rheumatoid arthritis
     Dosage: 11 MG, DAILY
     Route: 048
     Dates: start: 2013
  2. XELJANZ XR [Suspect]
     Active Substance: TOFACITINIB CITRATE
     Dosage: 11 MG, 1X/DAY
     Route: 048
     Dates: start: 202301, end: 20240927

REACTIONS (6)
  - Nephrolithiasis [Unknown]
  - Cardiac disorder [Unknown]
  - Arthralgia [Unknown]
  - Depression [Recovered/Resolved]
  - Chronic obstructive pulmonary disease [Unknown]
  - Gout [Unknown]

NARRATIVE: CASE EVENT DATE: 20150101
